FAERS Safety Report 5192324-8 (Version None)
Quarter: 2006Q4

REPORT INFORMATION
  Report Type: 
  Country: None (occurrence: None)
  Receive Date: 20061227
  Receipt Date: 20060705
  Transmission Date: 20070319
  Serious: Yes (Death, Life-Threatening)
  Sender: FDA-Public Use
  Company Number: AU-PFIZER INC-2006084516

PATIENT
  Sex: Male
  Weight: 105 kg

DRUGS (4)
  1. IDARUBICIN HCL [Suspect]
     Indication: ACUTE MYELOID LEUKAEMIA
     Route: 042
     Dates: start: 20060630, end: 20060703
  2. CYTARABINE [Suspect]
     Indication: ACUTE MYELOID LEUKAEMIA
     Route: 042
     Dates: start: 20060630, end: 20060705
  3. ETOPOSIDE [Suspect]
     Indication: ACUTE MYELOID LEUKAEMIA
     Route: 042
     Dates: start: 20060630, end: 20060705
  4. FILGRASTIM [Suspect]
     Indication: COLONY STIMULATING FACTOR PROPHYLAXIS
     Route: 058
     Dates: start: 20060706, end: 20060719

REACTIONS (12)
  - ACUTE PULMONARY OEDEMA [None]
  - ATRIAL FIBRILLATION [None]
  - CARDIAC FAILURE CONGESTIVE [None]
  - DRUG TOXICITY [None]
  - FEBRILE NEUTROPENIA [None]
  - FLUID OVERLOAD [None]
  - HYPOKALAEMIA [None]
  - HYPONATRAEMIA [None]
  - MULTI-ORGAN FAILURE [None]
  - RESPIRATORY FAILURE [None]
  - SEPSIS [None]
  - UPPER GASTROINTESTINAL HAEMORRHAGE [None]
